FAERS Safety Report 7045582-9 (Version None)
Quarter: 2010Q4

REPORT INFORMATION
  Report Type: 
  Country: None (occurrence: None)
  Receive Date: 20101013
  Receipt Date: 20101013
  Transmission Date: 20110411
  Serious: No
  Sender: FDA-Public Use
  Company Number: None

PATIENT
  Age: 33 Year
  Sex: Female
  Weight: 63.5036 kg

DRUGS (1)
  1. OXYCONTIN [Suspect]
     Indication: COMPLEX REGIONAL PAIN SYNDROME
     Dosage: 2 TIMES DAILY PO
     Route: 048
     Dates: start: 20100913, end: 20101009

REACTIONS (6)
  - ABDOMINAL PAIN UPPER [None]
  - DYSGEUSIA [None]
  - INADEQUATE ANALGESIA [None]
  - MALAISE [None]
  - PRODUCT FORMULATION ISSUE [None]
  - VOMITING [None]
